FAERS Safety Report 12739793 (Version 1)
Quarter: 2016Q3

REPORT INFORMATION
  Report Type: Spontaneous
  Country: US (occurrence: US)
  Receive Date: 20160910
  Receipt Date: 20160910
  Transmission Date: 20161109
  Serious: Yes (Hospitalization)
  Sender: FDA-Public Use
  Company Number: None

PATIENT
  Age: 55 Year
  Sex: Male
  Weight: 85.73 kg

DRUGS (6)
  1. VINCRISTINE SULFATE. [Suspect]
     Active Substance: VINCRISTINE SULFATE
     Dates: start: 20160816
  2. PREDNISONE. [Suspect]
     Active Substance: PREDNISONE
     Dates: end: 20160817
  3. DOXORUBICIN HYDROCHLORIDE. [Suspect]
     Active Substance: DOXORUBICIN HYDROCHLORIDE
     Dates: end: 20160816
  4. ETOPOSIDE (VP-16) [Suspect]
     Active Substance: ETOPOSIDE
     Dates: end: 20160816
  5. RITUXIMAB [Suspect]
     Active Substance: RITUXIMAB
     Dates: end: 20160812
  6. CYCLOPHOSPHAMIDE. [Suspect]
     Active Substance: CYCLOPHOSPHAMIDE
     Dates: end: 20160817

REACTIONS (9)
  - Hyperhidrosis [None]
  - Nausea [None]
  - Vomiting [None]
  - Pyrexia [None]
  - Pain [None]
  - Aspiration [None]
  - Chills [None]
  - Asthenia [None]
  - Tachycardia [None]

NARRATIVE: CASE EVENT DATE: 20160830
